FAERS Safety Report 6026057-2 (Version None)
Quarter: 2009Q1

REPORT INFORMATION
  Report Type: 
  Country: None (occurrence: None)
  Receive Date: 20090102
  Receipt Date: 20081201
  Transmission Date: 20090719
  Serious: Yes (Other)
  Sender: FDA-Public Use
  Company Number: GB-BAXTER-2008BH013218

PATIENT
  Sex: Male

DRUGS (1)
  1. SEVOFLURANE [Suspect]
     Indication: ANAESTHESIA
     Dosage: DOSE UNIT:UNKNOWN
     Route: 055

REACTIONS (2)
  - MEDICAL DEVICE COMPLICATION [None]
  - UNWANTED AWARENESS DURING ANAESTHESIA [None]
